FAERS Safety Report 10022085 (Version 1)
Quarter: 2014Q1

REPORT INFORMATION
  Report Type: Spontaneous
  Country: CA (occurrence: CA)
  Receive Date: 20140319
  Receipt Date: 20140319
  Transmission Date: 20141002
  Serious: Yes (Other)
  Sender: FDA-Public Use
  Company Number: CA-GLAXOSMITHKLINE-A1064632A

PATIENT
  Age: 37 Year
  Sex: Female

DRUGS (3)
  1. ADVAIR [Suspect]
     Indication: PRODUCT USED FOR UNKNOWN INDICATION
     Route: 065
  2. XOLAIR [Suspect]
     Indication: PRODUCT USED FOR UNKNOWN INDICATION
     Dosage: 300MG EVERY TWO WEEKS
     Route: 058
  3. CORTISONE [Concomitant]

REACTIONS (25)
  - Arthralgia [Unknown]
  - Body temperature decreased [Unknown]
  - Cough [Unknown]
  - Dizziness [Unknown]
  - Dyspnoea [Unknown]
  - Ear pain [Unknown]
  - Fatigue [Unknown]
  - Hypersensitivity [Unknown]
  - Influenza [Unknown]
  - Influenza like illness [Unknown]
  - Nasopharyngitis [Unknown]
  - Nausea [Unknown]
  - Oropharyngeal pain [Unknown]
  - Precancerous cells present [Unknown]
  - Rash [Unknown]
  - Respiration abnormal [Unknown]
  - Respiratory rate increased [Unknown]
  - Rhinorrhoea [Unknown]
  - Sinus headache [Unknown]
  - Sneezing [Unknown]
  - Spinal osteoarthritis [Unknown]
  - Wheezing [Unknown]
  - Nasopharyngitis [Unknown]
  - Rhinorrhoea [Unknown]
  - Sinus headache [Unknown]
